FAERS Safety Report 12343328 (Version 1)
Quarter: 2016Q2

REPORT INFORMATION
  Report Type: Spontaneous
  Country: US (occurrence: US)
  Receive Date: 20160506
  Receipt Date: 20160506
  Transmission Date: 20160815
  Serious: Yes (Hospitalization)
  Sender: FDA-Public Use
  Company Number: US-RELYPSA-RLY2016000506

PATIENT

DRUGS (11)
  1. VELTASSA [Suspect]
     Active Substance: PATIROMER
     Indication: HYPERKALAEMIA
     Dosage: 8.4 G, QD
     Route: 048
     Dates: start: 20160203
  2. ATORVASTATIN CALCIUM. [Concomitant]
     Active Substance: ATORVASTATIN CALCIUM
  3. CARTEOLOL HCL [Concomitant]
  4. CLOPIDOGREL BISULFATE. [Concomitant]
     Active Substance: CLOPIDOGREL BISULFATE
  5. MULTIVITAMINS [Concomitant]
     Active Substance: VITAMINS
  6. FAMOTIDINE. [Concomitant]
     Active Substance: FAMOTIDINE
  7. FINASTERIDE. [Concomitant]
     Active Substance: FINASTERIDE
  8. VITAMIN C [Concomitant]
     Active Substance: ASCORBIC ACID
  9. TAMSULOSIN HCL [Concomitant]
     Active Substance: TAMSULOSIN
  10. VITAMIN D                          /00107901/ [Concomitant]
     Active Substance: ERGOCALCIFEROL
  11. AMLODIPINE BESYLATE. [Concomitant]
     Active Substance: AMLODIPINE BESYLATE

REACTIONS (1)
  - Hospitalisation [Unknown]

NARRATIVE: CASE EVENT DATE: 20160425
